FAERS Safety Report 7765603-5 (Version None)
Quarter: 2011Q3

REPORT INFORMATION
  Report Type: 
  Country: None (occurrence: None)
  Receive Date: 20110921
  Receipt Date: 20110915
  Transmission Date: 20111222
  Serious: Yes (Other)
  Sender: FDA-Public Use
  Company Number: PHEH2011US04415

PATIENT
  Age: 66 Year
  Sex: Male

DRUGS (13)
  1. ZOMETA [Suspect]
     Indication: METASTASES TO BONE
     Dosage: 4 MG, EVERY 4 WEEK
     Dates: start: 20090414, end: 20110226
  2. XGEVA [Concomitant]
  3. DOLOPHINE HCL [Concomitant]
     Indication: PAIN
     Route: 048
  4. OSCAL 500-D [Concomitant]
     Route: 048
  5. ZOFRAN [Concomitant]
     Indication: VOMITING
     Dosage: 1 DF, EVERY 8 HR WHEN NEEDED
     Route: 048
  6. COLACE [Concomitant]
     Dosage: 1 DF, BID
     Route: 048
  7. MOTRIN [Concomitant]
  8. DILAUDID [Concomitant]
     Indication: PAIN
     Route: 048
  9. LASIX [Concomitant]
  10. PREDNISONE [Concomitant]
  11. VITAMIN D [Concomitant]
     Dosage: 1000 U, UNK
     Route: 048
  12. SPIRIVA [Concomitant]
  13. ADVAIR DISKUS 100/50 [Concomitant]

REACTIONS (1)
  - OSTEONECROSIS OF JAW [None]
